FAERS Safety Report 9193208 (Version 1)
Quarter: 2013Q1

REPORT INFORMATION
  Report Type: Report from Study
  Country: CA (occurrence: CA)
  Receive Date: 20130327
  Receipt Date: 20130327
  Transmission Date: 20140127
  Serious: Yes (Other)
  Sender: FDA-Public Use
  Company Number: CA-BAYER-2013-035111

PATIENT
  Age: 32 Year
  Sex: Female

DRUGS (2)
  1. BETASERON [Suspect]
     Indication: MULTIPLE SCLEROSIS
     Dosage: 0.250 MG, UNK
     Dates: start: 20080901, end: 20130301
  2. CONTRACEPTIVES NOS [Concomitant]
     Indication: CONTRACEPTION

REACTIONS (6)
  - Retinal exudates [None]
  - Scotoma [None]
  - Photopsia [None]
  - Feeling abnormal [None]
  - Dizziness [Recovering/Resolving]
  - Mobility decreased [Recovering/Resolving]
